FAERS Safety Report 4951143-5 (Version None)
Quarter: 2006Q1

REPORT INFORMATION
  Report Type: 
  Country: None (occurrence: None)
  Receive Date: 20060315
  Receipt Date: 20060223
  Transmission Date: 20060701
  Serious: Yes (Hospitalization)
  Sender: FDA-Public Use
  Company Number: JP200512000874

PATIENT
  Age: 71 Year
  Sex: Female
  Weight: 45 kg

DRUGS (4)
  1. RALOXIFENE HCL [Suspect]
     Indication: OSTEOPOROSIS POSTMENOPAUSAL
     Dosage: 60 MG DAILY (1/D) ORAL
     Route: 048
     Dates: start: 20050527, end: 20051127
  2. SUCRALFATE [Concomitant]
  3. LANSOPRAZOLE [Concomitant]
  4. CA (ASPARATE CALCIUM) [Concomitant]

REACTIONS (6)
  - ARTERIOSCLEROSIS [None]
  - CAROTID ARTERY ATHEROMA [None]
  - CAROTID ARTERY DISEASE [None]
  - CAROTID ARTERY STENOSIS [None]
  - CEREBRAL INFARCTION [None]
  - CONDITION AGGRAVATED [None]
